FAERS Safety Report 7375403-6 (Version None)
Quarter: 2011Q1

REPORT INFORMATION
  Report Type: 
  Country: None (occurrence: None)
  Receive Date: 20110325
  Receipt Date: 20110314
  Transmission Date: 20110831
  Serious: Yes (Hospitalization)
  Sender: FDA-Public Use
  Company Number: DE-NAPPMUNDI-DEU-2011-0007037

PATIENT
  Age: 71 Year
  Sex: Male

DRUGS (10)
  1. ACETYLSALICYLIC ACID [Concomitant]
     Dosage: 100 MG, DAILY
  2. TORASEMID [Concomitant]
     Dosage: 5 MG, DAILY
  3. OXYGESIC 20 MG [Suspect]
     Indication: BACK PAIN
     Dosage: 30 MG, BID
     Dates: start: 20100601
  4. FERRO SANOL                        /00023514/ [Concomitant]
     Dosage: 1 DF, DAILY
  5. PENTAERYTHRITOL TETRANITRATE [Concomitant]
     Dosage: 80 UNK, BID
  6. OXYGESIC 20 MG [Suspect]
     Dosage: 20 MG, BID
     Dates: start: 19990101, end: 20100601
  7. DIGITOXIN TAB [Concomitant]
     Dosage: 0.07 UNK, DAILY
  8. LISINOPRIL [Concomitant]
     Dosage: 5 MG, BID
  9. MOVICOL                            /01625101/ [Concomitant]
     Dosage: 1 DF, DAILY
  10. METOPROLOL [Concomitant]
     Dosage: 95 MG, DAILY

REACTIONS (4)
  - FATIGUE [None]
  - DYSPNOEA EXERTIONAL [None]
  - HYPERHIDROSIS [None]
  - GENERAL PHYSICAL HEALTH DETERIORATION [None]
